FAERS Safety Report 8928033 (Version 1)
Quarter: 2012Q4

REPORT INFORMATION
  Report Type: Spontaneous
  Country: US (occurrence: None)
  Receive Date: 20121126
  Receipt Date: 20121126
  Transmission Date: 20130627
  Serious: Yes (Other)
  Sender: FDA-Public Use
  Company Number: None

PATIENT
  Age: 28 Year
  Sex: Female
  Weight: 47.63 kg

DRUGS (1)
  1. PROPRANOLOL, 10 MG, PROPRANOLOL [Suspect]
     Indication: MIGRAINE
     Route: 048
     Dates: start: 20121116, end: 20121117

REACTIONS (6)
  - Convulsion [None]
  - Memory impairment [None]
  - Dyskinesia [None]
  - Muscle spasms [None]
  - Abnormal behaviour [None]
  - Tremor [None]
